FAERS Safety Report 20749916 (Version 1)
Quarter: 2022Q2

REPORT INFORMATION
  Report Type: Spontaneous
  Country: PL (occurrence: PL)
  Receive Date: 20220426
  Receipt Date: 20220426
  Transmission Date: 20220721
  Serious: Yes (Other)
  Sender: FDA-Public Use
  Company Number: PL-PFIZER INC-202200463197

PATIENT
  Age: 15 Year
  Sex: Male
  Weight: 38 kg

DRUGS (4)
  1. METHOTREXATE [Suspect]
     Active Substance: METHOTREXATE
     Indication: Juvenile idiopathic arthritis
     Dosage: UNK
  2. METHOTREXATE [Suspect]
     Active Substance: METHOTREXATE
     Dosage: UNK (PERMANENTLY TREATED WITH METHOTREXATE)
     Route: 065
  3. METHYLPREDNISOLONE [Suspect]
     Active Substance: METHYLPREDNISOLONE
     Indication: Juvenile idiopathic arthritis
     Dosage: UNK
  4. METHYLPREDNISOLONE [Suspect]
     Active Substance: METHYLPREDNISOLONE
     Dosage: UNK (PULSES OF METHYLPREDNISOLONE DURING EXACERBATION OF THE DISEASE)
     Route: 065

REACTIONS (5)
  - Growth retardation [Unknown]
  - Heliotrope rash [Unknown]
  - Erythema [Unknown]
  - Skin lesion [Unknown]
  - Growth disorder [Recovering/Resolving]
